FAERS Safety Report 7551018-1 (Version None)
Quarter: 2011Q2

REPORT INFORMATION
  Report Type: 
  Country: None (occurrence: None)
  Receive Date: 20110616
  Receipt Date: 20110602
  Transmission Date: 20111010
  Serious: Yes (Hospitalization)
  Sender: FDA-Public Use
  Company Number: CA-ELI_LILLY_AND_COMPANY-CA201103004831

PATIENT
  Age: 83 Year
  Sex: Female

DRUGS (21)
  1. OMEPRAZOLE [Concomitant]
  2. VITAMIN D [Concomitant]
  3. ASPIRIN [Concomitant]
  4. APO-GLICLAZIDE [Concomitant]
  5. CRESTOR [Concomitant]
  6. METFORMIN HCL [Concomitant]
  7. DOVONEX [Concomitant]
  8. NOVO-GESIC [Concomitant]
  9. HTZ [Concomitant]
  10. FORTEO [Suspect]
     Indication: OSTEOPOROSIS
     Dosage: 20 UG, DAILY (1/D)
     Route: 058
     Dates: start: 20101203
  11. SULFASALAZINE [Concomitant]
  12. RAMIPRIL [Concomitant]
  13. CALCIUM CARBONATE [Concomitant]
  14. LASIX [Concomitant]
  15. TYLENOL (CAPLET) [Concomitant]
  16. DIGOXIN [Concomitant]
  17. ENOXAPARIN [Concomitant]
  18. PIOGLITAZONE [Concomitant]
  19. LOSEC                              /00661201/ [Concomitant]
  20. FORTEO [Suspect]
     Dosage: 20 UG, QD
     Route: 058
     Dates: end: 20110331
  21. TYLENOL (CAPLET) [Concomitant]

REACTIONS (4)
  - CONSTIPATION [None]
  - CLOSTRIDIUM DIFFICILE COLITIS [None]
  - ADVERSE EVENT [None]
  - INSOMNIA [None]
